FAERS Safety Report 6960292-1 (Version None)
Quarter: 2010Q3

REPORT INFORMATION
  Report Type: 
  Country: None (occurrence: None)
  Receive Date: 20100901
  Receipt Date: 20100830
  Transmission Date: 20110219
  Serious: Yes (Hospitalization)
  Sender: FDA-Public Use
  Company Number: IT-SANOFI-AVENTIS-2010SA051438

PATIENT
  Age: 74 Year
  Sex: Female

DRUGS (6)
  1. ELOXATIN [Suspect]
     Route: 042
     Dates: start: 20100625, end: 20100625
  2. ELOXATIN [Suspect]
     Route: 042
     Dates: start: 20100712, end: 20100712
  3. PREFOLIC [Suspect]
     Route: 042
     Dates: start: 20100625, end: 20100625
  4. PREFOLIC [Suspect]
     Route: 042
     Dates: start: 20100713, end: 20100713
  5. FLUOROURACIL [Suspect]
     Route: 042
     Dates: start: 20100625, end: 20100625
  6. FLUOROURACIL [Suspect]
     Route: 042
     Dates: start: 20100714, end: 20100714

REACTIONS (4)
  - ATRIAL FIBRILLATION [None]
  - DYSPNOEA EXERTIONAL [None]
  - LEFT VENTRICULAR FAILURE [None]
  - TACHYCARDIA [None]
